FAERS Safety Report 26003400 (Version 3)
Quarter: 2025Q4

REPORT INFORMATION
  Report Type: Spontaneous
  Country: EU (occurrence: EU)
  Receive Date: 20251106
  Receipt Date: 20251219
  Transmission Date: 20260117
  Serious: Yes (Life-Threatening, Other)
  Sender: NOVARTIS
  Company Number: EU-002147023-NVSC2025DE170378

PATIENT
  Sex: Female

DRUGS (1)
  1. GILENYA [Suspect]
     Active Substance: FINGOLIMOD HYDROCHLORIDE
     Indication: Multiple sclerosis
     Dosage: 0.5 MG
     Route: 065

REACTIONS (4)
  - T-lymphocyte count decreased [Not Recovered/Not Resolved]
  - Immunodeficiency [Not Recovered/Not Resolved]
  - Red blood cell count decreased [Not Recovered/Not Resolved]
  - Aphthous ulcer [Recovered/Resolved]
